FAERS Safety Report 9338447 (Version 1)
Quarter: 2013Q2

REPORT INFORMATION
  Report Type: Spontaneous
  Country: US (occurrence: US)
  Receive Date: 20130610
  Receipt Date: 20130610
  Transmission Date: 20140414
  Serious: Yes (Other)
  Sender: FDA-Public Use
  Company Number: US-PFIZER INC-2013174310

PATIENT
  Age: 54 Year
  Sex: Female
  Weight: 65.76 kg

DRUGS (2)
  1. SERTRALINE HCL [Suspect]
     Indication: POST-TRAUMATIC STRESS DISORDER
     Dosage: 50 MG, DAILY
     Route: 048
     Dates: start: 2012
  2. SERTRALINE HCL [Suspect]
     Indication: OBSESSIVE-COMPULSIVE DISORDER

REACTIONS (7)
  - Depression [Not Recovered/Not Resolved]
  - Anxiety [Not Recovered/Not Resolved]
  - Sedation [Not Recovered/Not Resolved]
  - Dizziness [Not Recovered/Not Resolved]
  - Dysstasia [Not Recovered/Not Resolved]
  - Blood iron decreased [Recovered/Resolved]
  - Asthenia [Recovered/Resolved]
